FAERS Safety Report 6730981-2 (Version None)
Quarter: 2010Q2

REPORT INFORMATION
  Report Type: 
  Country: None (occurrence: None)
  Receive Date: 20100518
  Receipt Date: 20100509
  Transmission Date: 20101027
  Serious: Yes (Other)
  Sender: FDA-Public Use
  Company Number: EG-B.I. PHARMACEUTICALS,INC./RIDGEFIELD-2010-BP-05560YA

PATIENT
  Age: 63 Year
  Sex: Male

DRUGS (2)
  1. OMNIC [Suspect]
     Indication: BENIGN PROSTATIC HYPERPLASIA
     Dosage: 0.4 MG
     Route: 048
     Dates: start: 20100421, end: 20100425
  2. LEUKERAN [Concomitant]
     Indication: LYMPHOMA

REACTIONS (3)
  - OEDEMA [None]
  - OEDEMA PERIPHERAL [None]
  - PENILE OEDEMA [None]
